FAERS Safety Report 24294028 (Version 1)
Quarter: 2024Q3

REPORT INFORMATION
  Report Type: Spontaneous
  Country: US (occurrence: None)
  Receive Date: 20240906
  Receipt Date: 20240906
  Transmission Date: 20241017
  Serious: No
  Sender: DOMPE FARMACEUTICI
  Company Number: US-FARMAPROD-202308-202403-0977

PATIENT
  Age: 74 Year
  Sex: Female

DRUGS (22)
  1. OXERVATE [Suspect]
     Active Substance: CENEGERMIN-BKBJ
     Indication: Neurotrophic keratopathy
     Route: 047
     Dates: start: 20240315
  2. OXERVATE [Suspect]
     Active Substance: CENEGERMIN-BKBJ
  3. REFRESH CLASSIC [Concomitant]
     Active Substance: POLYVINYL ALCOHOL\POVIDONE
  4. OLANZAPINE [Concomitant]
     Active Substance: OLANZAPINE
  5. SOLIFENACIN SUCCINATE [Concomitant]
     Active Substance: SOLIFENACIN SUCCINATE
  6. IMODIUM [Concomitant]
     Active Substance: LOPERAMIDE HYDROCHLORIDE
  7. MULTIVITAMIN 50 PLUS [Concomitant]
  8. VALSARTAN [Concomitant]
     Active Substance: VALSARTAN
  9. ROSUVASTATIN CALCIUM [Concomitant]
     Active Substance: ROSUVASTATIN CALCIUM
  10. PANTOPRAZOLE SODIUM [Concomitant]
     Active Substance: PANTOPRAZOLE SODIUM
  11. LEXAPRO [Concomitant]
     Active Substance: ESCITALOPRAM OXALATE
  12. AMLODIPINE BESYLATE [Concomitant]
     Active Substance: AMLODIPINE BESYLATE
  13. BUSPIRONE HCL [Concomitant]
     Active Substance: BUSPIRONE HYDROCHLORIDE
  14. METOPROLOL SUCCINATE [Concomitant]
     Active Substance: METOPROLOL SUCCINATE
  15. JANUVIA [Concomitant]
     Active Substance: SITAGLIPTIN PHOSPHATE
  16. NOVOLOG [Concomitant]
     Active Substance: INSULIN ASPART
     Dosage: VIAL
  17. RISPERIDONE [Concomitant]
     Active Substance: RISPERIDONE
  18. TRESIBA [Concomitant]
     Active Substance: INSULIN DEGLUDEC
     Dosage: VIAL
  19. CALCIUM CITRATE\VITAMIN D [Concomitant]
     Active Substance: CALCIUM CITRATE\VITAMIN D
  20. LEVOTHYROXINE SODIUM [Concomitant]
     Active Substance: LEVOTHYROXINE SODIUM
  21. ALIGN [Concomitant]
     Active Substance: BIFIDOBACTERIUM LONGUM SUBSP. INFANTIS
  22. TYLENOL [Concomitant]
     Active Substance: ACETAMINOPHEN

REACTIONS (3)
  - Eye pain [Recovering/Resolving]
  - Product dose omission issue [Unknown]
  - Headache [Unknown]

NARRATIVE: CASE EVENT DATE: 20240317
